FAERS Safety Report 6305678-3 (Version None)
Quarter: 2009Q3

REPORT INFORMATION
  Report Type: 
  Country: None (occurrence: None)
  Receive Date: 20090807
  Receipt Date: 20090722
  Transmission Date: 20100115
  Serious: Yes (Hospitalization)
  Sender: FDA-Public Use
  Company Number: 2009002234

PATIENT
  Age: 89 Year
  Sex: Female

DRUGS (1)
  1. TARCEVA [Suspect]
     Indication: LUNG NEOPLASM MALIGNANT
     Dosage: (150 MG), ORAL
     Route: 048
     Dates: start: 20090709, end: 20090720

REACTIONS (2)
  - DIARRHOEA [None]
  - HALLUCINATION [None]
